FAERS Safety Report 4316075-4 (Version None)
Quarter: 2004Q1

REPORT INFORMATION
  Report Type: 
  Country: None (occurrence: None)
  Receive Date: 20040310
  Receipt Date: 20040225
  Transmission Date: 20041129
  Serious: Yes (Life-Threatening)
  Sender: FDA-Public Use
  Company Number: 2000-BP-01583

PATIENT
  Age: 1 Day
  Sex: Female

DRUGS (7)
  1. VIRAMUNE [Suspect]
     Indication: PROPHYLAXIS AGAINST HIV INFECTION
     Dosage: 200 MG (200 MG, SINLE MATERNAL )
     Route: 015
     Dates: start: 20000722
  2. VIRAMUNE [Suspect]
     Indication: VERTICAL INFECTION TRANSMISSION
     Dosage: 200 MG (200 MG, SINLE MATERNAL )
     Route: 015
     Dates: start: 20000722
  3. MATERNAL FERROUS SULFATE (FERROUS SULFATE) [Concomitant]
  4. MATERNAL FOLIC ACID (FOLIC ACID) [Concomitant]
  5. MATERNAL ZIDOVUDINE (ZIDOVUDINE) [Concomitant]
  6. PHYTONADIONE [Concomitant]
  7. BCG VACCINE (BCG VACCINE) [Concomitant]

REACTIONS (2)
  - DRUG EXPOSURE DURING PREGNANCY [None]
  - NEUTROPENIA NEONATAL [None]
